FAERS Safety Report 14583605 (Version 1)
Quarter: 2018Q1

REPORT INFORMATION
  Report Type: Spontaneous
  Country: HU (occurrence: HU)
  Receive Date: 20180228
  Receipt Date: 20180228
  Transmission Date: 20180509
  Serious: Yes (Other)
  Sender: FDA-Public Use
  Company Number: HU-PFIZER INC-2018079636

PATIENT
  Age: 44 Year
  Sex: Female

DRUGS (9)
  1. DOCETAXEL. [Suspect]
     Active Substance: DOCETAXEL
     Indication: BREAST CANCER
     Dosage: PLANNED DOSE: 70MG
     Route: 042
     Dates: start: 20180126
  2. HERCEPTIN [Concomitant]
     Active Substance: TRASTUZUMAB
     Indication: BREAST CANCER
     Dosage: 600 MG, CYCLIC
     Route: 058
     Dates: start: 20180105
  3. SOLU-MEDROL [Concomitant]
     Active Substance: METHYLPREDNISOLONE SODIUM SUCCINATE
     Dosage: 125 MG, CYCLIC
     Route: 040
  4. BENFOGAMMA [Concomitant]
     Indication: PROPHYLAXIS
     Dosage: 300 MG, 1X/DAY
     Route: 048
  5. ZOLADEX [Concomitant]
     Active Substance: GOSERELIN ACETATE
     Indication: BREAST CANCER
     Dosage: 1 DF UNKNOWN, EVERY 28 DAYS
     Route: 058
  6. ZITAZONIUM [Concomitant]
     Active Substance: TAMOXIFEN CITRATE
     Indication: BREAST CANCER
     Dosage: 10 MG, 1X/DAY
     Route: 048
  7. SUPRASTIN [Concomitant]
     Active Substance: CHLOROPYRAMINE HYDROCHLORIDE
     Dosage: 50 MG, CYCLIC
     Route: 048
  8. QUAMATEL [Concomitant]
     Active Substance: FAMOTIDINE
     Route: 048
  9. ONDANSETRON KABI [Concomitant]
     Active Substance: ONDANSETRON
     Dosage: 8 MG, CYCLIC
     Route: 040

REACTIONS (4)
  - Hypoaesthesia [Recovering/Resolving]
  - Back pain [Recovering/Resolving]
  - Dizziness [Recovering/Resolving]
  - Blood pressure decreased [Recovering/Resolving]

NARRATIVE: CASE EVENT DATE: 20180126
